FAERS Safety Report 13710864 (Version 2)
Quarter: 2017Q3

REPORT INFORMATION
  Report Type: Spontaneous
  Country: US (occurrence: US)
  Receive Date: 20170703
  Receipt Date: 20170723
  Transmission Date: 20171127
  Serious: No
  Sender: FDA-Public Use
  Company Number: US-ASTRAZENECA-2017SE67825

PATIENT
  Age: 21548 Day
  Sex: Female
  Weight: 49 kg

DRUGS (6)
  1. TAGRISSO [Suspect]
     Active Substance: OSIMERTINIB
     Indication: NON-SMALL CELL LUNG CANCER
     Route: 048
     Dates: start: 20170625
  2. CALCIUM [Concomitant]
     Active Substance: CALCIUM
  3. MAGNESIUM [Concomitant]
     Active Substance: MAGNESIUM
  4. ETOPOSIDE. [Concomitant]
     Active Substance: ETOPOSIDE
  5. CARBOPLATIN. [Concomitant]
     Active Substance: CARBOPLATIN
  6. ASPIRIN. [Concomitant]
     Active Substance: ASPIRIN

REACTIONS (4)
  - Fatigue [Unknown]
  - Musculoskeletal pain [Unknown]
  - Myalgia [Unknown]
  - Neck pain [Unknown]

NARRATIVE: CASE EVENT DATE: 20170628
